FAERS Safety Report 19740544 (Version 7)
Quarter: 2021Q4

REPORT INFORMATION
  Report Type: Report from Study
  Country: GB (occurrence: GB)
  Receive Date: 20210825
  Receipt Date: 20211111
  Transmission Date: 20220303
  Serious: Yes (Hospitalization, Other)
  Sender: FDA-Public Use
  Company Number: GB-CELLTRION INC.-2021GB011491

PATIENT

DRUGS (77)
  1. TRASTUZUMAB [Suspect]
     Active Substance: TRASTUZUMAB
     Indication: Breast cancer metastatic
     Dosage: 8 MG, Q3W, INFUSION, SOLUTION; PAIN FROM METASTASES (DOSE FORM: 293)
     Route: 042
     Dates: start: 20171108
  2. TRASTUZUMAB [Suspect]
     Active Substance: TRASTUZUMAB
     Indication: HER2 positive breast cancer
     Dosage: 8 MILLIGRAM, Q3WK (PHARMACEUTICAL DOSE FORM: 293); PAIN FROM METASTASES
     Route: 042
     Dates: start: 20171108
  3. TRASTUZUMAB [Suspect]
     Active Substance: TRASTUZUMAB
     Indication: Breast cancer
     Dosage: UNK, PHARMACEUTICAL DOSE FORM: 293; PAIN FROM METASTASES
  4. TRASTUZUMAB [Suspect]
     Active Substance: TRASTUZUMAB
     Dosage: 8 MG, EVERY 3 WEEKS (PAIN FROM METASTASES)
     Route: 042
     Dates: start: 20171108
  5. TRASTUZUMAB [Suspect]
     Active Substance: TRASTUZUMAB
     Indication: Breast cancer metastatic
     Dosage: 8 MILLIGRAM, Q3WK (DOSE FORM: 293)
     Route: 042
     Dates: start: 20171108
  6. PERTUZUMAB [Suspect]
     Active Substance: PERTUZUMAB
     Indication: Breast cancer metastatic
     Dosage: 840 MG, Q3WK PAIN FROM METASTASES
     Route: 042
     Dates: start: 20181120
  7. PERTUZUMAB [Suspect]
     Active Substance: PERTUZUMAB
     Indication: HER2 positive breast cancer
     Dosage: PAIN FROM METASTASES
  8. PERTUZUMAB [Suspect]
     Active Substance: PERTUZUMAB
     Indication: Breast cancer
     Dosage: 840 MG, Q3W
     Route: 042
     Dates: start: 20181120
  9. PERTUZUMAB [Suspect]
     Active Substance: PERTUZUMAB
     Dosage: 840 MG, Q3W, PAIN FROM METASTASES, (PHARMACEUTICAL DOSAGE FORM: 230)
     Route: 042
     Dates: start: 20181120
  10. PERTUZUMAB [Suspect]
     Active Substance: PERTUZUMAB
     Dosage: (DOSE FORM:230) PAIN FROM METASTASES
     Route: 065
  11. PERTUZUMAB [Suspect]
     Active Substance: PERTUZUMAB
     Indication: Breast cancer metastatic
     Dosage: 840 MILLIGRAM, Q3WK
     Route: 042
     Dates: start: 20181120
  12. DOCETAXEL [Suspect]
     Active Substance: DOCETAXEL
     Indication: Breast cancer metastatic
     Dosage: 148 MILLIGRAM, Q3WK; PAIN FROM METASTASES
     Route: 042
     Dates: start: 20171108, end: 20180131
  13. DOCETAXEL [Suspect]
     Active Substance: DOCETAXEL
     Indication: HER2 positive breast cancer
     Dosage: 592 MILLIGRAM; PAIN FROM METASTASES
  14. DOCETAXEL [Suspect]
     Active Substance: DOCETAXEL
     Indication: Breast cancer
     Dosage: 592 MILLIGRAM; PAIN FROM METASTASES
     Route: 065
  15. DOCETAXEL [Suspect]
     Active Substance: DOCETAXEL
     Dosage: UNK
     Route: 065
  16. DOCETAXEL [Suspect]
     Active Substance: DOCETAXEL
     Dosage: 592 MILLIGRAM; PAIN FROM METASTASES
     Route: 042
  17. DOCETAXEL [Suspect]
     Active Substance: DOCETAXEL
     Indication: Breast cancer metastatic
     Dosage: 592 MG
     Route: 065
  18. BECLOMETHASONE DIPROPIONATE [Concomitant]
     Active Substance: BECLOMETHASONE DIPROPIONATE
     Indication: Cancer pain
     Dosage: DOSE 2 PUFF, 0.5 DAY
     Route: 055
  19. BECLOMETHASONE DIPROPIONATE [Concomitant]
     Active Substance: BECLOMETHASONE DIPROPIONATE
     Dosage: 2 PUFF, BID PAIN FROM METASTASES
     Route: 055
  20. BECLOMETHASONE DIPROPIONATE [Concomitant]
     Active Substance: BECLOMETHASONE DIPROPIONATE
     Dosage: 2 OT, QD (DOSE 2 PUFF)
     Route: 055
  21. SODIUM PICOSULFATE [Concomitant]
     Active Substance: SODIUM PICOSULFATE
     Indication: Constipation
     Dosage: DOSE 10 OTHER (10 MG IN 10 ML) PAIN FROM METASTASES
     Route: 048
  22. SODIUM PICOSULFATE [Concomitant]
     Active Substance: SODIUM PICOSULFATE
     Dosage: 10 MG, QD
     Route: 048
  23. SODIUM PICOSULFATE [Concomitant]
     Active Substance: SODIUM PICOSULFATE
     Dosage: UNK
     Route: 048
  24. SODIUM PICOSULFATE [Concomitant]
     Active Substance: SODIUM PICOSULFATE
     Dosage: DOSE 10 OTHER (10 MG IN 10 ML), QD; PAIN FROM METASTASES
     Route: 048
  25. SODIUM PICOSULFATE [Concomitant]
     Active Substance: SODIUM PICOSULFATE
     Dosage: 10 MILLIGRAM PER 10 MILLILITRE, QD, PAIN FROM METASTASES
     Route: 048
  26. SODIUM PICOSULFATE [Concomitant]
     Active Substance: SODIUM PICOSULFATE
     Dosage: DOSE 10 OTHER (10 MG IN 10 ML)
     Route: 048
  27. OMEPRAZOLE [Concomitant]
     Active Substance: OMEPRAZOLE
     Indication: Product used for unknown indication
     Dosage: 40 MILLIGRAM, QD;  PAIN FROM METASTASES
     Route: 048
     Dates: start: 201710
  28. OXYCODONE [Concomitant]
     Active Substance: OXYCODONE
     Indication: Cancer pain
     Dosage: 110 MG, 0.5 PER DAY (PAIN FROM METASTASES)
     Route: 048
  29. OXYCODONE [Concomitant]
     Active Substance: OXYCODONE
     Dosage: 220 MILLIGRAM, QD (PAIN FROM METASTASES)
  30. SIMVASTATIN [Concomitant]
     Active Substance: SIMVASTATIN
     Indication: Product used for unknown indication
     Dosage: 40 MILLIGRAM, QD; PAIN FROM METASTASES
     Route: 048
  31. NITROFURANTOIN [Concomitant]
     Active Substance: NITROFURANTOIN
     Indication: Urinary tract infection
     Dosage: 50 MG,0.25
     Route: 048
     Dates: start: 20181103, end: 20181109
  32. NITROFURANTOIN [Concomitant]
     Active Substance: NITROFURANTOIN
     Dosage: 200 MILLIGRAM, QD; PAIN FROM METASTASES
     Route: 048
     Dates: start: 20181103, end: 20181109
  33. NITROFURANTOIN [Concomitant]
     Active Substance: NITROFURANTOIN
     Dosage: 50 MILLIGRAM (CUMULATIVE DOSE: 6608.333 MG)
     Route: 048
     Dates: start: 20181103, end: 20181109
  34. NITROFURANTOIN [Concomitant]
     Active Substance: NITROFURANTOIN
     Dosage: 50 MG, 0.25 PER DAY (PAIN FORM METASTASES)
     Route: 048
     Dates: start: 20181103, end: 20181109
  35. ALBUTEROL [Concomitant]
     Active Substance: ALBUTEROL
     Indication: Product used for unknown indication
     Dosage: PRN (DOSE 2 PUFF)
     Route: 055
  36. ALBUTEROL [Concomitant]
     Active Substance: ALBUTEROL
     Dosage: DOSE 2 PUFF; PAIN FROM METASTASES
     Route: 055
  37. ALBUTEROL [Concomitant]
     Active Substance: ALBUTEROL
     Dosage: PRN (DOSE 2 PUFF); PAIN FROM METASTASES
     Route: 055
  38. LINEZOLID [Concomitant]
     Active Substance: LINEZOLID
     Indication: Device related infection
     Dosage: 600 MILLIGRAM; PAIN FROM METASTASES
     Route: 048
     Dates: start: 20191125, end: 20191130
  39. LINEZOLID [Concomitant]
     Active Substance: LINEZOLID
     Dosage: UNK
  40. CHOLECALCIFEROL [Concomitant]
     Active Substance: CHOLECALCIFEROL
     Indication: Product used for unknown indication
     Dosage: 1 DF,0.5
     Route: 048
  41. CALCIUM CARBONATE [Concomitant]
     Active Substance: CALCIUM CARBONATE
     Indication: Product used for unknown indication
     Dosage: 1 DF,0.5
     Route: 048
  42. CALCIUM CARBONATE [Concomitant]
     Active Substance: CALCIUM CARBONATE
     Dosage: 1 DOSAGE FORM, QD; PAIN FROM METASTASES
     Route: 048
  43. CALCIUM CARBONATE [Concomitant]
     Active Substance: CALCIUM CARBONATE
     Dosage: 1 DOSAGE FORM, BID; PAIN FROM METASTASES
     Route: 048
  44. CALCIUM CARBONATE [Concomitant]
     Active Substance: CALCIUM CARBONATE
     Dosage: 1 DOSAGE FORM, QD
     Route: 048
  45. MIRTAZAPINE [Concomitant]
     Active Substance: MIRTAZAPINE
     Indication: Product used for unknown indication
     Dosage: 45 MILLIGRAM, QD; PAIN FROM METASTASES
     Route: 048
  46. CALCIUM CARBONATE\CHOLECALCIFEROL [Concomitant]
     Active Substance: CALCIUM CARBONATE\CHOLECALCIFEROL
     Dosage: 1 DF, PER 0.5 DAY, PAIN FROM METASTASES
     Route: 048
  47. CALCIUM CARBONATE\CHOLECALCIFEROL [Concomitant]
     Active Substance: CALCIUM CARBONATE\CHOLECALCIFEROL
     Dosage: 2 DF, 1/DAY (DOSAGE FORM: 245)
     Route: 048
  48. RAMIPRIL [Concomitant]
     Active Substance: RAMIPRIL
     Indication: Product used for unknown indication
     Dosage: 1.25 MILLIGRAM, QD; PAIN FROM METASTASES
     Route: 048
  49. BECLOMETHASONE DIPROPIONATE [Concomitant]
     Active Substance: BECLOMETHASONE DIPROPIONATE
     Indication: Cancer pain
     Dosage: 2 OT, QD
  50. BECLOMETHASONE DIPROPIONATE [Concomitant]
     Active Substance: BECLOMETHASONE DIPROPIONATE
     Dosage: PUFF, BID
  51. BECLOMETHASONE DIPROPIONATE [Concomitant]
     Active Substance: BECLOMETHASONE DIPROPIONATE
     Dosage: DOSE 2 PUFF;
  52. BECLOMETHASONE DIPROPIONATE [Concomitant]
     Active Substance: BECLOMETHASONE DIPROPIONATE
     Dosage: 2 PUFF, BID
  53. BECLOMETHASONE DIPROPIONATE [Concomitant]
     Active Substance: BECLOMETHASONE DIPROPIONATE
     Dosage: DOSE 2 PUFF (0.5 DAY)
  54. BECLOMETHASONE DIPROPIONATE [Concomitant]
     Active Substance: BECLOMETHASONE DIPROPIONATE
     Dosage: 2 OT, QD (DOSE 2 PUFF)
  55. LACTULOSE [Concomitant]
     Active Substance: LACTULOSE
     Indication: Prophylaxis
     Dosage: 10 MILLILITER, BID (0.5 DAY); PAIN FROM METASTASES
     Route: 048
  56. LACTULOSE [Concomitant]
     Active Substance: LACTULOSE
     Dosage: 10 ML, PER 0.5 DAY (PROPHYLAXIS OF OPIOID INDUCED CONSTIPATION)
     Route: 048
  57. LACTULOSE [Concomitant]
     Active Substance: LACTULOSE
     Dosage: 10 MILLILITER, BID PAIN FROM METASTASES
     Route: 048
  58. LACTULOSE [Concomitant]
     Active Substance: LACTULOSE
     Dosage: 10 ML, PER 0.5 DAY (PROPHYLAXIS OF OPIOID INDUCED CONSTIPATION)
  59. LACTULOSE [Concomitant]
     Active Substance: LACTULOSE
     Dosage: 10 ML, PER 0.5 DAY (PROPHYLAXIS OF OPIOID INDUCED CONSTIPATION)
     Route: 048
  60. QUETIAPINE [Concomitant]
     Active Substance: QUETIAPINE
     Indication: Depressed mood
     Dosage: UNK UNK, QD PAIN FROM METASTASES
     Route: 048
     Dates: start: 2020
  61. QUETIAPINE [Concomitant]
     Active Substance: QUETIAPINE
     Dosage: 100 MILLIGRAM, QD (DOSAGE FORM: 245); PAIN FROM METASTASES
     Route: 048
     Dates: end: 2020
  62. QUETIAPINE [Concomitant]
     Active Substance: QUETIAPINE
     Dosage: 150 MILLIGRAM, QD; PAIN FROM METASTASES
     Route: 048
     Dates: start: 2020
  63. QUETIAPINE [Concomitant]
     Active Substance: QUETIAPINE
     Dosage: 100 MILLIGRAM, QD; PAIN FROM METASTASES
     Route: 048
     Dates: start: 2020
  64. QUETIAPINE [Concomitant]
     Active Substance: QUETIAPINE
     Dosage: UNK, QD PAIN FROM METASTASES
     Route: 048
     Dates: start: 2020
  65. METFORMIN [Concomitant]
     Active Substance: METFORMIN HYDROCHLORIDE
     Indication: Product used for unknown indication
     Dosage: 1000 MILLIGRAM, QD; PAIN FROM METASTASES
     Route: 048
  66. METFORMIN [Concomitant]
     Active Substance: METFORMIN HYDROCHLORIDE
     Dosage: 500 MILLIGRAM, QD; PAIN FROM METASTASES
     Route: 048
  67. METFORMIN [Concomitant]
     Active Substance: METFORMIN HYDROCHLORIDE
     Dosage: 500 MILLIGRAM, QD; PAIN FROM METASTASES
     Route: 048
  68. OXYCODONE [Concomitant]
     Active Substance: OXYCODONE
     Indication: Cancer pain
     Dosage: 110 MG, BID (0.5 DAY) (PAIN FROM METASTASES; DOSAGE FORM: 245)
     Route: 048
  69. OXYCODONE [Concomitant]
     Active Substance: OXYCODONE
     Dosage: 110 MG, 0.5 DAY, PAIN FROM METASTASES
     Route: 048
  70. OXYCODONE [Concomitant]
     Active Substance: OXYCODONE
     Dosage: 220 MILLIGRAM, QD; PAIN FROM METASTASES
     Route: 048
  71. CLENIL [BECLOMETASONE DIPROPIONATE] [Concomitant]
     Indication: Cancer pain
     Dosage: DOSE 2 PUFF (0.5 DAY)PAIN FROM METASTASES
     Route: 055
  72. CLENIL [BECLOMETASONE DIPROPIONATE] [Concomitant]
     Dosage: DOSE 2 PUFF; PAIN FROM METASTASES
     Route: 055
  73. CLENIL [BECLOMETASONE DIPROPIONATE] [Concomitant]
     Dosage: 2 OT, QD (DOSE 2 PUFF)
     Route: 055
  74. CLENIL [BECLOMETASONE DIPROPIONATE] [Concomitant]
     Dosage: 2 PUFF, BID; PAIN FROM METASTASES
     Route: 055
  75. CLONAZEPAM [Concomitant]
     Active Substance: CLONAZEPAM
     Indication: Muscle spasms
     Dosage: 250 MILLIGRAM, QD; PAIN FROM METASTASES
     Route: 048
     Dates: start: 2020
  76. MORPHINE [Concomitant]
     Active Substance: MORPHINE
     Indication: Cancer pain
     Dosage: 5 MILLIGRAM; PAIN FROM METASTASES
     Dates: start: 20181002, end: 20181002
  77. ONDANSETRON [Concomitant]
     Active Substance: ONDANSETRON
     Indication: Product used for unknown indication
     Dosage: 4 MILLIGRAM; PAIN FROM METASTASES
     Dates: start: 20181002, end: 20181002

REACTIONS (11)
  - Abdominal rigidity [Recovered/Resolved with Sequelae]
  - Abdominal rigidity [Recovered/Resolved]
  - Abdominal rigidity [Recovered/Resolved]
  - Device related infection [Recovered/Resolved]
  - Device related infection [Recovered/Resolved]
  - Muscle spasms [Recovered/Resolved]
  - Muscle spasms [Recovered/Resolved with Sequelae]
  - Muscle spasms [Recovered/Resolved]
  - Off label use [Unknown]
  - Diarrhoea [Recovered/Resolved]
  - Vomiting [Recovered/Resolved]

NARRATIVE: CASE EVENT DATE: 20181001
